FAERS Safety Report 11251305 (Version 1)
Quarter: 2015Q3

REPORT INFORMATION
  Report Type: Spontaneous
  Country: US (occurrence: US)
  Receive Date: 20150708
  Receipt Date: 20150708
  Transmission Date: 20151125
  Serious: No
  Sender: FDA-Public Use
  Company Number: US-ELI_LILLY_AND_COMPANY-US201111002415

PATIENT
  Age: 71 Year
  Sex: Female

DRUGS (1)
  1. ALIMTA [Suspect]
     Active Substance: PEMETREXED DISODIUM
     Indication: NON-SMALL CELL LUNG CANCER
     Dosage: UNK, EVERY 3 WEEKS UNTIL PROGRESSION

REACTIONS (5)
  - Fatigue [Unknown]
  - Oedema peripheral [Unknown]
  - Pyrexia [Unknown]
  - Neuropathy peripheral [Unknown]
  - Back pain [Unknown]
